FAERS Safety Report 7258733-8 (Version None)
Quarter: 2011Q1

REPORT INFORMATION
  Report Type: 
  Country: None (occurrence: None)
  Receive Date: 20110129
  Receipt Date: 20100609
  Transmission Date: 20110831
  Serious: No
  Sender: FDA-Public Use
  Company Number: US-ABBOTT-10P-163-0645513-00

PATIENT
  Sex: Male
  Weight: 145.28 kg

DRUGS (10)
  1. HUMIRA [Suspect]
     Dates: start: 20100401
  2. APRAZAOLAM [Concomitant]
     Indication: ANXIETY
  3. HUMIRA [Suspect]
     Dates: start: 20100326, end: 20100326
  4. CLOBETASOL [Concomitant]
     Indication: PSORIASIS
  5. METOPROLOL [Concomitant]
     Indication: HYPERTENSION
  6. CLOBEX [Concomitant]
     Indication: PSORIASIS
  7. HUMIRA [Suspect]
     Indication: PSORIASIS
     Dates: start: 20090101, end: 20091201
  8. LISINOPRIL [Concomitant]
     Indication: HYPERTENSION
  9. MORPHINE [Concomitant]
     Indication: PAIN
  10. VICODIN [Concomitant]
     Indication: PAIN

REACTIONS (1)
  - DRUG PRESCRIBING ERROR [None]
